FAERS Safety Report 9419246 (Version 1)
Quarter: 2013Q3

REPORT INFORMATION
  Report Type: Spontaneous
  Country: NL (occurrence: NL)
  Receive Date: 20130723
  Receipt Date: 20130723
  Transmission Date: 20140515
  Serious: Yes (Hospitalization)
  Sender: FDA-Public Use
  Company Number: AUR-APL-2013-05959

PATIENT
  Age: 14 Year
  Sex: Male
  Weight: 60 kg

DRUGS (2)
  1. CEFTRIAXONE (CEFTRIAXONE) [Suspect]
     Indication: LYME DISEASE
     Route: 042
  2. CEFTRIAXONE (CEFTRIAXONE) [Suspect]
     Indication: ARTHRITIS
     Route: 042

REACTIONS (17)
  - Abdominal pain upper [None]
  - Malaise [None]
  - Vomiting [None]
  - Murphy^s sign positive [None]
  - Cholecystitis [None]
  - Blood alkaline phosphatase increased [None]
  - Gamma-glutamyltransferase increased [None]
  - Blood bilirubin increased [None]
  - Bilirubin conjugated increased [None]
  - Aspartate aminotransferase increased [None]
  - Alanine aminotransferase increased [None]
  - C-reactive protein increased [None]
  - White blood cell count increased [None]
  - Cholelithiasis [None]
  - Cholestasis [None]
  - Biliary dilatation [None]
  - Abdominal pain upper [None]
